FAERS Safety Report 9412674 (Version 1)
Quarter: 2013Q3

REPORT INFORMATION
  Report Type: Report from Study
  Country: US (occurrence: US)
  Receive Date: 20130722
  Receipt Date: 20130722
  Transmission Date: 20140515
  Serious: Yes (Hospitalization)
  Sender: FDA-Public Use
  Company Number: US-ROCHE-1250297

PATIENT
  Sex: Female

DRUGS (3)
  1. KADCYLA [Suspect]
     Indication: BREAST CANCER STAGE IV
     Dosage: DOSE UNKNOWN
     Route: 065
     Dates: start: 20130710
  2. COREG [Concomitant]
     Indication: CARDIAC FAILURE CONGESTIVE
     Route: 065
  3. LISINOPRIL [Concomitant]
     Indication: CARDIAC FAILURE CONGESTIVE

REACTIONS (7)
  - Dehydration [Recovering/Resolving]
  - Chest pain [Recovered/Resolved]
  - Dizziness [Recovered/Resolved]
  - Dizziness [Recovered/Resolved]
  - Asthenia [Recovered/Resolved]
  - Nausea [Recovered/Resolved]
  - Diarrhoea [Unknown]
